FAERS Safety Report 18861827 (Version 5)
Quarter: 2021Q3

REPORT INFORMATION
  Report Type: Report from Study
  Country: US (occurrence: US)
  Receive Date: 20210208
  Receipt Date: 20210928
  Transmission Date: 20211014
  Serious: No
  Sender: FDA-Public Use
  Company Number: NVSC2021US027699

PATIENT
  Age: 66 Year
  Sex: Male

DRUGS (1)
  1. ENTRESTO [Suspect]
     Active Substance: SACUBITRIL\VALSARTAN
     Indication: CARDIAC FAILURE
     Dosage: 1 DF, BID
     Route: 048
     Dates: start: 20210120

REACTIONS (7)
  - Cough [Unknown]
  - Product dose omission issue [Unknown]
  - COVID-19 [Unknown]
  - Memory impairment [Unknown]
  - Weight decreased [Unknown]
  - General physical health deterioration [Unknown]
  - Weight increased [Unknown]

NARRATIVE: CASE EVENT DATE: 202101
